FAERS Safety Report 15021050 (Version 2)
Quarter: 2018Q2

REPORT INFORMATION
  Report Type: Spontaneous
  Country: AU (occurrence: AU)
  Receive Date: 20180618
  Receipt Date: 20180620
  Transmission Date: 20180711
  Serious: Yes (Other)
  Sender: FDA-Public Use
  Company Number: AU-MYLANLABS-2018M1041010

PATIENT
  Sex: Female

DRUGS (8)
  1. DIAFORMIN XR [Suspect]
     Active Substance: METFORMIN HYDROCHLORIDE
     Dosage: 500 MG, QD
     Dates: start: 201805
  2. TRAJENTA [Suspect]
     Active Substance: LINAGLIPTIN
     Indication: PRODUCT USED FOR UNKNOWN INDICATION
     Dosage: UNK
  3. DIAFORMIN XR [Suspect]
     Active Substance: METFORMIN HYDROCHLORIDE
     Dosage: UNK
     Dates: start: 2014
  4. GLICLAZIDE [Suspect]
     Active Substance: GLICLAZIDE
     Indication: PRODUCT USED FOR UNKNOWN INDICATION
     Dosage: UNK
  5. DIAFORMIN XR [Suspect]
     Active Substance: METFORMIN HYDROCHLORIDE
     Dosage: 2 DF, BID
  6. DIAFORMIN XR [Suspect]
     Active Substance: METFORMIN HYDROCHLORIDE
     Indication: TYPE 2 DIABETES MELLITUS
     Dosage: LOW DOSE
     Dates: start: 2012
  7. JARDIANCE [Suspect]
     Active Substance: EMPAGLIFLOZIN
     Indication: PRODUCT USED FOR UNKNOWN INDICATION
     Dosage: UNK
  8. DIAFORMIN XR [Suspect]
     Active Substance: METFORMIN HYDROCHLORIDE
     Dosage: 2 DF, QD

REACTIONS (8)
  - Abdominal distension [Not Recovered/Not Resolved]
  - Gastrooesophageal reflux disease [Not Recovered/Not Resolved]
  - Diarrhoea [Not Recovered/Not Resolved]
  - Dry mouth [Not Recovered/Not Resolved]
  - Dysgeusia [Not Recovered/Not Resolved]
  - Abdominal pain upper [Not Recovered/Not Resolved]
  - Choking sensation [Not Recovered/Not Resolved]
  - Medication residue present [Not Recovered/Not Resolved]
